FAERS Safety Report 9888435 (Version 2)
Quarter: 2014Q1

REPORT INFORMATION
  Report Type: Spontaneous
  Country: CA (occurrence: CA)
  Receive Date: 20140211
  Receipt Date: 20140228
  Transmission Date: 20141002
  Serious: Yes (Death, Hospitalization)
  Sender: FDA-Public Use
  Company Number: CA-PFIZER INC-2014033413

PATIENT
  Age: 62 Year
  Sex: Male

DRUGS (8)
  1. REVATIO [Suspect]
     Indication: PORTOPULMONARY HYPERTENSION
     Dosage: 20 MG, 3X/DAY
     Dates: start: 20140131
  2. FUROSEMIDE [Concomitant]
     Dosage: 40 MG IN THE MORNING AND 20 MG IN THE EVENING
  3. MORPHINE [Concomitant]
     Dosage: 15 MG, 2X/DAY
  4. RABEPRAZOLE [Concomitant]
     Dosage: 20 MG, DAILY
  5. MAVIK [Concomitant]
     Dosage: 2 MG, DAILY
  6. WARFARIN [Concomitant]
     Dosage: 3 MG, 1X/DAY FOR 7 WEEKS
  7. ADVIL [Concomitant]
     Dosage: UNK
  8. BENADRYL [Concomitant]
     Dosage: AS NEEDED AT BEDTIME

REACTIONS (4)
  - Death [Fatal]
  - Confusional state [Not Recovered/Not Resolved]
  - Blood pressure abnormal [Not Recovered/Not Resolved]
  - Blood test abnormal [Not Recovered/Not Resolved]
